FAERS Safety Report 23533272 (Version 1)
Quarter: 2024Q1

REPORT INFORMATION
  Report Type: Spontaneous
  Country: TN (occurrence: None)
  Receive Date: 20240216
  Receipt Date: 20240216
  Transmission Date: 20240410
  Serious: Yes (Death, Other)
  Sender: FDA-Public Use
  Company Number: TN-ROCHE-3493524

PATIENT
  Age: 56 Year
  Sex: Male

DRUGS (1)
  1. TECENTRIQ [Suspect]
     Active Substance: ATEZOLIZUMAB
     Indication: Non-small cell lung cancer
     Route: 065

REACTIONS (7)
  - Pericarditis [Fatal]
  - Dyspnoea [Unknown]
  - Chest pain [Unknown]
  - Respiratory failure [Unknown]
  - Disease progression [Unknown]
  - Pleurisy [Unknown]
  - Coma [Fatal]

NARRATIVE: CASE EVENT DATE: 20240113
